FAERS Safety Report 16349455 (Version 8)
Quarter: 2019Q4

REPORT INFORMATION
  Report Type: Spontaneous
  Country: TW (occurrence: TW)
  Receive Date: 20190523
  Receipt Date: 20191220
  Transmission Date: 20200122
  Serious: Yes (Hospitalization, Other)
  Sender: FDA-Public Use
  Company Number: TW-PFIZER INC-2018525467

PATIENT
  Age: 61 Year
  Sex: Male

DRUGS (2)
  1. SUTENT [Suspect]
     Active Substance: SUNITINIB MALATE
     Dosage: 37.5 MG, CYCLIC (DAILY, TWO WEEKS ON AND ONE WEEK OFF)
     Route: 048
     Dates: start: 20190313, end: 20191118
  2. SUTENT [Suspect]
     Active Substance: SUNITINIB MALATE
     Indication: RENAL CELL CARCINOMA
     Dosage: 50 MG, CYCLIC (DAILY, TWO WEEKS ON AND ONE WEEK OFF)
     Route: 048
     Dates: start: 20181207

REACTIONS (35)
  - Thrombotic microangiopathy [Not Recovered/Not Resolved]
  - Hypersomnia [Recovered/Resolved]
  - Abdominal discomfort [Recovered/Resolved]
  - Stomatitis [Recovered/Resolved]
  - Platelet count decreased [Recovered/Resolved]
  - Periorbital oedema [Not Recovered/Not Resolved]
  - Weight decreased [Not Recovered/Not Resolved]
  - Hypertension [Not Recovered/Not Resolved]
  - Diarrhoea [Not Recovered/Not Resolved]
  - Muscular weakness [Not Recovered/Not Resolved]
  - Gastrooesophageal reflux disease [Not Recovered/Not Resolved]
  - Anaemia [Not Recovered/Not Resolved]
  - Blood urea increased [Not Recovered/Not Resolved]
  - Hypothyroidism [Not Recovered/Not Resolved]
  - Contusion [Recovered/Resolved]
  - White blood cell count decreased [Recovered/Resolved]
  - Urinary incontinence [Recovered/Resolved]
  - Abdominal pain [Not Recovered/Not Resolved]
  - Skin ulcer [Not Recovered/Not Resolved]
  - Insomnia [Unknown]
  - Anorectal discomfort [Recovered/Resolved]
  - Decreased appetite [Not Recovered/Not Resolved]
  - Asthma [Not Recovered/Not Resolved]
  - Arrhythmia [Not Recovered/Not Resolved]
  - Gingival pain [Recovered/Resolved]
  - Blood creatinine increased [Not Recovered/Not Resolved]
  - Blood lactate dehydrogenase increased [Not Recovered/Not Resolved]
  - Nausea [Recovered/Resolved]
  - Dysgeusia [Not Recovered/Not Resolved]
  - Palmar-plantar erythrodysaesthesia syndrome [Recovered/Resolved]
  - Proteinuria [Not Recovered/Not Resolved]
  - Hypoalbuminaemia [Not Recovered/Not Resolved]
  - Productive cough [Not Recovered/Not Resolved]
  - Hypocalcaemia [Not Recovered/Not Resolved]
  - Fatigue [Not Recovered/Not Resolved]

NARRATIVE: CASE EVENT DATE: 2018
